FAERS Safety Report 17625400 (Version 1)
Quarter: 2020Q2

REPORT INFORMATION
  Report Type: Report from Study
  Country: JP (occurrence: JP)
  Receive Date: 20200404
  Receipt Date: 20200404
  Transmission Date: 20200713
  Serious: Yes (Other)
  Sender: FDA-Public Use
  Company Number: JP-ROCHE-2574545

PATIENT

DRUGS (2)
  1. BEVACIZUMAB. [Suspect]
     Active Substance: BEVACIZUMAB
     Indication: NON-SMALL CELL LUNG CANCER
     Dosage: DAY 1 OF EACH COURSE
     Route: 042
  2. AMRUBICIN [Suspect]
     Active Substance: AMRUBICIN
     Indication: NON-SMALL CELL LUNG CANCER
     Dosage: FOR 3 DAYS
     Route: 042

REACTIONS (8)
  - Embolism [Unknown]
  - Febrile neutropenia [Unknown]
  - Leukopenia [Unknown]
  - Proteinuria [Unknown]
  - Neutropenia [Unknown]
  - Anaemia [Unknown]
  - Infection [Unknown]
  - Platelet count decreased [Unknown]
